FAERS Safety Report 7158662-4 (Version None)
Quarter: 2010Q4

REPORT INFORMATION
  Report Type: 
  Country: None (occurrence: None)
  Receive Date: 20101214
  Receipt Date: 20100622
  Transmission Date: 20110411
  Serious: No
  Sender: FDA-Public Use
  Company Number: US-ASTRAZENECA-2010SE29191

PATIENT
  Age: 20259 Day
  Sex: Male
  Weight: 82.6 kg

DRUGS (7)
  1. CRESTOR [Suspect]
     Indication: HYPERCHOLESTEROLAEMIA
     Route: 048
     Dates: start: 20100501, end: 20100609
  2. LOVAZA [Concomitant]
  3. HYDROCHLOROTHIAZIDE [Concomitant]
  4. LISINOPRIL [Concomitant]
  5. TOPROL-XL [Concomitant]
  6. VITAMIN E [Concomitant]
  7. COENZYME Q10 [Concomitant]

REACTIONS (5)
  - GAIT DISTURBANCE [None]
  - HYPERTENSION [None]
  - LOW DENSITY LIPOPROTEIN INCREASED [None]
  - MYALGIA [None]
  - MYOPATHY [None]
